FAERS Safety Report 8326176-1 (Version None)
Quarter: 2012Q2

REPORT INFORMATION
  Report Type: 
  Country: None (occurrence: None)
  Receive Date: 20120501
  Receipt Date: 20120426
  Transmission Date: 20120825
  Serious: Yes (Life-Threatening, Hospitalization, Other)
  Sender: FDA-Public Use
  Company Number: JP-CELGENEUS-087-21880-11011577

PATIENT
  Sex: Female

DRUGS (133)
  1. FENTANYL-100 [Suspect]
     Route: 061
     Dates: start: 20101201
  2. FENTANYL-100 [Suspect]
     Dosage: 16.8 MILLIGRAM
     Route: 062
     Dates: start: 20101121, end: 20101121
  3. PROTECADIN [Concomitant]
     Dosage: 20 MILLIGRAM
     Route: 048
     Dates: start: 20101125, end: 20101125
  4. PROTECADIN [Concomitant]
     Dosage: 10 MILLIGRAM
     Route: 048
     Dates: start: 20101126, end: 20101209
  5. CEPHARANTHIN [Concomitant]
     Dosage: 30 MILLIGRAM
     Route: 048
     Dates: start: 20101124, end: 20101124
  6. CEPHARANTHIN [Concomitant]
     Dosage: 30 MILLIGRAM
     Route: 048
     Dates: start: 20101211, end: 20101229
  7. BETAMETHASONE [Concomitant]
     Dosage: .5 MILLIGRAM
     Route: 048
     Dates: start: 20101126, end: 20101209
  8. ACETAMINOPHEN [Concomitant]
     Dosage: 1800 MILLIGRAM
     Route: 048
     Dates: start: 20110119, end: 20110124
  9. MUCOSTA [Concomitant]
     Dosage: 300 MILLIGRAM
     Route: 048
     Dates: start: 20101126, end: 20101209
  10. PROCHLORPERAZINE [Concomitant]
     Dosage: 15 MILLIGRAM
     Route: 048
     Dates: start: 20101016
  11. FUNGIZONE [Concomitant]
     Dosage: 8 MILLILITER
     Route: 048
     Dates: start: 20101126, end: 20101209
  12. ETIZOLAM [Concomitant]
     Dosage: .25 MILLIGRAM
     Route: 048
     Dates: start: 20101023
  13. MAGNESIUM SULFATE [Concomitant]
     Indication: PROPHYLAXIS
     Dosage: 1980 MILLIGRAM
     Route: 048
     Dates: start: 20110119, end: 20110124
  14. GABAPENTIN [Concomitant]
     Dosage: 600 MILLIGRAM
     Route: 048
     Dates: start: 20101124, end: 20101124
  15. GABAPENTIN [Concomitant]
     Dosage: 600 MILLIGRAM
     Route: 048
     Dates: start: 20110119, end: 20110124
  16. CLONAZEPAM [Concomitant]
     Dosage: .5 MILLIGRAM
     Route: 048
     Dates: start: 20101101, end: 20101103
  17. OXINORM [Concomitant]
     Dosage: 160 MILLIGRAM
     Route: 048
     Dates: start: 20101103, end: 20101103
  18. SOLDEM 3A [Concomitant]
     Indication: PROPHYLAXIS
     Dosage: 500 MILLILITER
     Route: 041
     Dates: start: 20101020, end: 20101020
  19. SALINE [Concomitant]
     Dosage: 300 MILLILITER
     Route: 041
     Dates: start: 20101022, end: 20101022
  20. HEPARIN NA LOCK [Concomitant]
     Dosage: 100 UNITS
     Dates: start: 20101022, end: 20101022
  21. ZOMETA [Concomitant]
     Dosage: 3 MILLIGRAM
     Route: 041
     Dates: start: 20101021, end: 20101021
  22. DEXAMETHASONE ACETATE [Suspect]
     Indication: MULTIPLE MYELOMA
     Dosage: 4 MILLIGRAM
     Route: 048
     Dates: start: 20101119, end: 20101119
  23. CEPHARANTHIN [Concomitant]
     Dosage: 30 MILLIGRAM
     Route: 048
     Dates: start: 20101126, end: 20101209
  24. CEPHARANTHIN [Concomitant]
     Dosage: 60 MILLIGRAM
     Route: 048
     Dates: start: 20101210, end: 20101210
  25. BETAMETHASONE [Concomitant]
     Indication: MULTIPLE MYELOMA
     Dosage: .5 MILLIGRAM
     Route: 048
     Dates: start: 20101016
  26. BETAMETHASONE [Concomitant]
     Dosage: 1 MILLIGRAM
     Route: 048
     Dates: start: 20101125, end: 20101125
  27. BETAMETHASONE [Concomitant]
     Dosage: .5 MILLIGRAM
     Route: 048
     Dates: start: 20110120, end: 20110125
  28. ACETAMINOPHEN [Concomitant]
     Indication: MULTIPLE MYELOMA
     Dosage: 300 MILLIGRAM
     Route: 048
     Dates: start: 20101016
  29. ACETAMINOPHEN [Concomitant]
     Dosage: 3600 MILLIGRAM
     Route: 048
     Dates: start: 20101125, end: 20101125
  30. ACETAMINOPHEN [Concomitant]
     Dosage: 3600 MILLIGRAM
     Route: 048
     Dates: start: 20101210, end: 20101210
  31. MUCOSTA [Concomitant]
     Indication: PROPHYLAXIS
     Dosage: 300 MILLIGRAM
     Route: 048
     Dates: start: 20101016
  32. MUCOSTA [Concomitant]
     Dosage: 600 MILLIGRAM
     Route: 048
     Dates: start: 20101125, end: 20101125
  33. VITAMIN B12 [Concomitant]
     Dosage: 3000 MICROGRAM
     Route: 048
     Dates: start: 20101125, end: 20101125
  34. FUNGIZONE [Concomitant]
     Dosage: 16 MILLILITER
     Route: 048
     Dates: start: 20101210, end: 20101210
  35. CLONAZEPAM [Concomitant]
     Indication: MULTIPLE MYELOMA
     Dosage: .5 MILLIGRAM
     Route: 048
     Dates: start: 20110119, end: 20110124
  36. OXINORM [Concomitant]
     Dosage: 200 MILLIGRAM
     Route: 048
     Dates: start: 20101120, end: 20101120
  37. SALINE [Concomitant]
     Indication: PROPHYLAXIS
     Dosage: 200 MILLILITER
     Route: 041
     Dates: start: 20101016, end: 20101018
  38. SALINE [Concomitant]
     Dosage: 200 MILLILITER
     Route: 041
     Dates: start: 20101024, end: 20101026
  39. LAXOBERON [Concomitant]
     Dosage: 10 MILLILITER
     Route: 048
     Dates: start: 20101125, end: 20101125
  40. DEXAMETHASONE ACETATE [Suspect]
     Dosage: 4 MILLIGRAM
     Route: 048
     Dates: start: 20101126, end: 20101126
  41. CEPHARANTHIN [Concomitant]
     Indication: MULTIPLE MYELOMA
     Dosage: 30 MILLIGRAM
     Route: 048
     Dates: start: 20101016
  42. ACETAMINOPHEN [Concomitant]
     Dosage: 1800 MILLIGRAM
     Route: 048
     Dates: start: 20101124, end: 20101124
  43. ACETAMINOPHEN [Concomitant]
     Dosage: 1800 MILLIGRAM
     Route: 048
     Dates: start: 20101211, end: 20101229
  44. FUNGIZONE [Concomitant]
     Dosage: 8 MILLILITER
     Route: 048
     Dates: start: 20101124, end: 20101124
  45. DEXAMETHASONE [Concomitant]
     Indication: MULTIPLE MYELOMA
     Dosage: 13.2 MILLIGRAM
     Route: 041
     Dates: start: 20101022, end: 20101023
  46. MAGMITT [Concomitant]
     Dosage: 1980 MILLIGRAM
     Route: 048
     Dates: start: 20101125, end: 20101125
  47. MAGMITT [Concomitant]
     Dosage: 990 MILLIGRAM
     Route: 048
     Dates: start: 20101211, end: 20101229
  48. GRAN [Concomitant]
     Dosage: 75 MICROGRAM
     Route: 041
     Dates: start: 20101019, end: 20101019
  49. GRAN [Concomitant]
     Dosage: 75 MICROGRAM
     Route: 041
     Dates: start: 20101026, end: 20101026
  50. REVLIMID [Suspect]
     Dosage: 5 MILLIGRAM
     Route: 048
     Dates: start: 20101027, end: 20101103
  51. REVLIMID [Suspect]
     Dosage: 5 MILLIGRAM
     Route: 048
     Dates: start: 20101210, end: 20101229
  52. DEXAMETHASONE ACETATE [Suspect]
     Dosage: 2.2857 MILLIGRAM
     Route: 048
     Dates: start: 20101201, end: 20101229
  53. FENTANYL-100 [Suspect]
     Dosage: 8.4 MILLIGRAM
     Route: 062
     Dates: start: 20101016, end: 20101016
  54. FENTANYL-100 [Suspect]
     Dosage: 16.8 MILLIGRAM
     Route: 062
     Dates: start: 20110119, end: 20110124
  55. VALTREX [Concomitant]
     Dosage: 500 MILLIGRAM
     Route: 048
     Dates: start: 20101124, end: 20101124
  56. PROTECADIN [Concomitant]
     Dosage: 20 MILLIGRAM
     Dates: start: 20101210, end: 20101210
  57. CEPHARANTHIN [Concomitant]
     Dosage: 60 MILLIGRAM
     Route: 048
     Dates: start: 20101125, end: 20101125
  58. BETAMETHASONE [Concomitant]
     Dosage: .5 MILLIGRAM
     Route: 048
     Dates: start: 20101211, end: 20101229
  59. ACETAMINOPHEN [Concomitant]
     Dosage: 1800 MILLIGRAM
     Route: 048
     Dates: start: 20101103, end: 20101103
  60. MUCOSTA [Concomitant]
     Dosage: 300 MILLIGRAM
     Route: 048
     Dates: start: 20101211, end: 20101229
  61. VITAMIN B12 [Concomitant]
     Dosage: 3000 MICROGRAM
     Route: 048
     Dates: start: 20101210, end: 20101210
  62. VITAMIN B12 [Concomitant]
     Dosage: 1500 MICROGRAM
     Route: 048
     Dates: start: 20101211, end: 20101229
  63. AMITRIPTYLINE HCL [Concomitant]
     Indication: MULTIPLE MYELOMA
     Dosage: 37.5 MILLIGRAM
     Route: 048
     Dates: start: 20110119, end: 20110124
  64. OXINORM [Concomitant]
     Dosage: 100 MILLIGRAM
     Route: 048
     Dates: start: 20101025, end: 20101025
  65. IBRUPROFEN [Concomitant]
     Dosage: 1000 MILLIGRAM
     Route: 048
     Dates: start: 20101021, end: 20101021
  66. SALINE [Concomitant]
     Dosage: 20 MILLILITER
     Route: 041
     Dates: start: 20101022, end: 20101022
  67. HEPARIN NA LOCK [Concomitant]
     Indication: PROPHYLAXIS
     Dosage: 200 UNITS
     Route: 041
     Dates: start: 20101016, end: 20101018
  68. TPN ELECTROLYTES IN PLASTIC CONTAINER [Concomitant]
     Indication: PROPHYLAXIS
     Dosage: 1000 MILLIGRAM
     Route: 041
     Dates: start: 20101022, end: 20101023
  69. REVLIMID [Suspect]
     Indication: MULTIPLE MYELOMA
     Dosage: 2.5 MILLIGRAM
     Route: 048
     Dates: start: 20101016, end: 20101021
  70. FENTANYL-100 [Suspect]
     Indication: MULTIPLE MYELOMA
     Route: 062
  71. FENTANYL-100 [Suspect]
     Dosage: 8.4 MILLIGRAM
     Route: 062
     Dates: start: 20101019, end: 20101019
  72. FENTANYL-100 [Suspect]
     Dosage: 16.8 MILLIGRAM
     Route: 062
     Dates: start: 20101028, end: 20101028
  73. VALTREX [Concomitant]
     Dosage: 1000 MILLIGRAM
     Route: 048
     Dates: start: 20101210, end: 20101210
  74. ACETAMINOPHEN [Concomitant]
     Dosage: 400 MILLIGRAM
     Route: 048
     Dates: start: 20101022, end: 20101022
  75. FUNGIZONE [Concomitant]
     Dosage: 8 MILLILITER
     Route: 048
     Dates: start: 20101211, end: 20101229
  76. GABAPENTIN [Concomitant]
     Indication: PROPHYLAXIS
     Dosage: 600 MILLIGRAM
     Route: 048
     Dates: start: 20110119, end: 20110124
  77. CLONAZEPAM [Concomitant]
     Dosage: .5 MILLIGRAM
     Route: 048
     Dates: start: 20101211, end: 20101229
  78. FALESTACK [Concomitant]
     Indication: PROPHYLAXIS
     Dosage: 30 MILLILITER
     Route: 048
     Dates: start: 20110119, end: 20110124
  79. OXINORM [Concomitant]
     Dosage: 100 MILLIGRAM
     Route: 048
     Dates: start: 20101028, end: 20101031
  80. OXINORM [Concomitant]
     Dosage: 400 MILLIGRAM
     Route: 048
     Dates: start: 20101101, end: 20101101
  81. OXINORM [Concomitant]
     Dosage: 400 MILLIGRAM
     Route: 048
     Dates: start: 20101125, end: 20101125
  82. PRIMPERAN TAB [Concomitant]
     Dosage: 10 MILLIGRAM
     Route: 041
     Dates: start: 20101021, end: 20101021
  83. MAGMITT [Concomitant]
     Dosage: 750 MILLIGRAM
     Route: 048
     Dates: start: 20101025, end: 20101026
  84. MAGMITT [Concomitant]
     Dosage: 1980 MILLIGRAM
     Route: 048
     Dates: start: 20101210, end: 20101210
  85. HEPARIN NA LOCK [Concomitant]
     Dosage: 200 UNITS
     Route: 041
     Dates: start: 20101020, end: 20101021
  86. REVLIMID [Suspect]
     Dosage: 5 MILLIGRAM
     Route: 048
     Dates: start: 20110120, end: 20110122
  87. REVLIMID [Suspect]
     Dosage: 5 MILLIGRAM
     Route: 048
     Dates: start: 20110124, end: 20110124
  88. FENTANYL-100 [Suspect]
     Dosage: 12.6 MILLIGRAM
     Route: 062
     Dates: start: 20101022, end: 20101022
  89. FENTANYL-100 [Suspect]
     Dosage: 8.4 MILLIGRAM
     Route: 062
     Dates: start: 20101025, end: 20101025
  90. FENTANYL-100 [Suspect]
     Dosage: 16.8 MILLIGRAM
     Route: 062
     Dates: start: 20101124, end: 20101124
  91. PROTECADIN [Concomitant]
     Dosage: 10 MILLIGRAM
     Route: 048
     Dates: start: 20101124, end: 20101124
  92. BETAMETHASONE [Concomitant]
     Dosage: 1 MILLIGRAM
     Route: 048
     Dates: start: 20101210, end: 20101210
  93. MUCOSTA [Concomitant]
     Dosage: 300 MILLIGRAM
     Route: 048
     Dates: start: 20101124, end: 20101124
  94. VITAMIN B12 [Concomitant]
     Dosage: 1500 MICROGRAM
     Route: 048
     Dates: start: 20101124, end: 20101124
  95. FUNGIZONE [Concomitant]
     Dosage: 16 MILLILITER
     Route: 048
     Dates: start: 20101125, end: 20101125
  96. DEXAMETHASONE [Concomitant]
     Dosage: 13.2 MILLIGRAM
     Route: 041
     Dates: start: 20101029, end: 20101030
  97. MAGMITT [Concomitant]
     Dosage: 990 MILLIGRAM
     Route: 048
     Dates: start: 20101124, end: 20101124
  98. SALINE [Concomitant]
     Dosage: 200 MILLILITER
     Route: 041
     Dates: start: 20101021, end: 20101021
  99. REVLIMID [Suspect]
     Dosage: 10 MILLIGRAM
     Route: 048
     Dates: start: 20101022, end: 20101024
  100. FENTANYL-100 [Suspect]
     Dosage: 84 MILLIGRAM
     Route: 062
     Dates: start: 20101210, end: 20101210
  101. VALTREX [Concomitant]
     Indication: MULTIPLE MYELOMA
     Dosage: 500 MILLIGRAM
     Route: 048
     Dates: start: 20101016
  102. VALTREX [Concomitant]
     Dosage: 1000 MILLIGRAM
     Route: 048
     Dates: start: 20101125, end: 20101125
  103. PROTECADIN [Concomitant]
     Indication: PROPHYLAXIS
     Dosage: 10 MILLIGRAM
     Route: 048
     Dates: start: 20101016
  104. BETAMETHASONE [Concomitant]
     Dosage: .5 MILLIGRAM
     Route: 048
     Dates: start: 20101124, end: 20101124
  105. VITAMIN B12 [Concomitant]
     Indication: MULTIPLE MYELOMA
     Dosage: 500 MICROGRAM
     Route: 048
     Dates: start: 20101016
  106. ENSURE LIQUID [Concomitant]
     Indication: MULTIPLE MYELOMA
     Dosage: 250 MILLILITER
     Route: 048
     Dates: start: 20101016, end: 20101102
  107. FUNGIZONE [Concomitant]
     Indication: MULTIPLE MYELOMA
     Dosage: 8 MILLILITER
     Route: 048
     Dates: start: 20101016
  108. OXINORM [Concomitant]
     Dosage: 50 MILLIGRAM
     Route: 048
     Dates: start: 20101021, end: 20101021
  109. OXINORM [Concomitant]
     Dosage: 50 MILLIGRAM
     Dates: start: 20101027, end: 20101027
  110. MAGMITT [Concomitant]
     Dosage: 990 MILLIGRAM
     Route: 048
     Dates: start: 20101028, end: 20101029
  111. MAGMITT [Concomitant]
     Dosage: 990 MILLIGRAM
     Route: 048
     Dates: start: 20101126, end: 20101209
  112. SOLDEM 3A [Concomitant]
     Dosage: 1000 MILLILITER
     Route: 041
     Dates: start: 20101021, end: 20101021
  113. SALINE [Concomitant]
     Dosage: 100 MILLILITER
     Route: 041
     Dates: start: 20101029, end: 20101030
  114. FIRSTCIN [Concomitant]
     Dosage: 1000 MILLIGRAM
     Route: 041
     Dates: start: 20101016, end: 20101018
  115. FLURBIPROFEN [Concomitant]
     Dosage: 50 MILLIGRAM
     Route: 041
     Dates: start: 20101020, end: 20101020
  116. MAXIPIME [Concomitant]
     Dosage: 1000 MILLIGRAM
     Route: 041
     Dates: start: 20101022, end: 20101026
  117. REVLIMID [Suspect]
     Dosage: 5 MILLIGRAM
     Route: 048
     Dates: start: 20101113, end: 20101202
  118. FENTANYL-100 [Suspect]
     Dosage: 50.4 MILLIGRAM
     Route: 062
     Dates: start: 20101125, end: 20101125
  119. VALTREX [Concomitant]
     Dosage: 500 MILLIGRAM
     Route: 048
     Dates: start: 20101126, end: 20101209
  120. VALTREX [Concomitant]
     Dosage: 500 MILLIGRAM
     Route: 048
     Dates: start: 20101211, end: 20101229
  121. PROTECADIN [Concomitant]
     Dosage: 10 MILLIGRAM
     Route: 048
     Dates: start: 20101211, end: 20101229
  122. ACETAMINOPHEN [Concomitant]
     Dosage: 1800 MILLIGRAM
     Route: 048
     Dates: start: 20101126, end: 20101209
  123. MUCOSTA [Concomitant]
     Dosage: 600 MILLIGRAM
     Route: 048
     Dates: start: 20101210, end: 20101210
  124. VITAMIN B12 [Concomitant]
     Dosage: 1500 MICROGRAM
     Route: 048
     Dates: start: 20101126, end: 20101209
  125. REBAMIPIDE [Concomitant]
     Indication: MULTIPLE MYELOMA
     Dosage: 300 MILLIGRAM
     Route: 048
     Dates: start: 20110119, end: 20110124
  126. MECOBALAMIN [Concomitant]
     Indication: MULTIPLE MYELOMA
     Dosage: 1500 MICROGRAM
     Route: 048
     Dates: start: 20110119, end: 20110124
  127. PRIMPERAN TAB [Concomitant]
     Dosage: 20 MILLIGRAM
     Route: 041
     Dates: start: 20101020, end: 20101020
  128. PRIMPERAN TAB [Concomitant]
     Dosage: 5 MILLIGRAM
     Route: 048
     Dates: start: 20101021, end: 20101021
  129. SALINE [Concomitant]
     Dosage: 100 MILLILITER
     Route: 041
     Dates: start: 20101020, end: 20101020
  130. SALINE [Concomitant]
     Dosage: 20 MILLILITER
     Route: 041
     Dates: start: 20101020, end: 20101020
  131. SALINE [Concomitant]
     Dosage: 1000 MILLILITER
     Route: 041
     Dates: start: 20101023, end: 20101026
  132. ATARAX [Concomitant]
     Dosage: 25 MILLIGRAM
     Route: 041
     Dates: start: 20101021, end: 20101021
  133. MAXIPIME [Concomitant]
     Dosage: 1500 MILLIGRAM
     Route: 041
     Dates: start: 20101021, end: 20101021

REACTIONS (15)
  - ALANINE AMINOTRANSFERASE INCREASED [None]
  - PSYCHIATRIC SYMPTOM [None]
  - HYPERAMYLASAEMIA [None]
  - RHABDOMYOLYSIS [None]
  - BLOOD LACTATE DEHYDROGENASE INCREASED [None]
  - C-REACTIVE PROTEIN INCREASED [None]
  - NEUTROPHIL COUNT DECREASED [None]
  - PYELONEPHRITIS [None]
  - THROMBOCYTOPENIA [None]
  - PAIN [None]
  - HYPERTHERMIA [None]
  - ASPARTATE AMINOTRANSFERASE INCREASED [None]
  - PYREXIA [None]
  - LIP HAEMORRHAGE [None]
  - ALTERED STATE OF CONSCIOUSNESS [None]
